FAERS Safety Report 5749930-9 (Version None)
Quarter: 2008Q2

REPORT INFORMATION
  Report Type: 
  Country: None (occurrence: None)
  Receive Date: 20080527
  Receipt Date: 20080521
  Transmission Date: 20081010
  Serious: Yes (Other)
  Sender: FDA-Public Use
  Company Number: US-ELI_LILLY_AND_COMPANY-US200805004337

PATIENT
  Sex: Female

DRUGS (3)
  1. HUMULIN N [Suspect]
     Dates: start: 19730101
  2. HUMULIN N [Suspect]
     Dates: start: 19730101
  3. HUMULIN R [Suspect]

REACTIONS (8)
  - ABASIA [None]
  - BLINDNESS [None]
  - BLOOD GLUCOSE INCREASED [None]
  - CATARACT [None]
  - EYE HAEMORRHAGE [None]
  - PROCEDURAL PAIN [None]
  - SNEEZING [None]
  - VISUAL ACUITY REDUCED [None]
